FAERS Safety Report 23575186 (Version 1)
Quarter: 2024Q1

REPORT INFORMATION
  Report Type: Spontaneous
  Country: US (occurrence: US)
  Receive Date: 20240228
  Receipt Date: 20240228
  Transmission Date: 20240410
  Serious: Yes (Other)
  Sender: FDA-Public Use
  Company Number: US-Elevate Oral Care-2153785

PATIENT
  Age: 78 Year
  Sex: Female

DRUGS (1)
  1. ALLDAY 5000 [Suspect]
     Active Substance: SODIUM FLUORIDE
     Route: 048
     Dates: start: 20240215, end: 20240215

REACTIONS (1)
  - Palpitations [Recovered/Resolved]

NARRATIVE: CASE EVENT DATE: 20240215
